FAERS Safety Report 9637354 (Version 1)
Quarter: 2013Q4

REPORT INFORMATION
  Report Type: Spontaneous
  Country: FR (occurrence: FR)
  Receive Date: 20131022
  Receipt Date: 20131022
  Transmission Date: 20140711
  Serious: Yes (Hospitalization)
  Sender: FDA-Public Use
  Company Number: PHHY2013FR117834

PATIENT
  Age: 84 Year
  Sex: Male

DRUGS (2)
  1. LEPONEX [Suspect]
     Dosage: 100 MG, QD
     Route: 048
     Dates: start: 20130712, end: 20130712
  2. IMOVANE [Concomitant]
     Dosage: UNK

REACTIONS (4)
  - Aphasia [Unknown]
  - Accidental exposure to product [Recovered/Resolved]
  - Confusional state [Recovered/Resolved]
  - Tremor [Recovered/Resolved]
